FAERS Safety Report 8865477 (Version 1)
Quarter: 2012Q4

REPORT INFORMATION
  Report Type: 
  Country: US (occurrence: US)
  Receive Date: 20121024
  Receipt Date: 20121024
  Transmission Date: 20130627
  Serious: No
  Sender: FDA-Public Use
  Company Number: US-AMGEN-USASP2012003273

PATIENT
  Sex: Female
  Weight: 122.45 kg

DRUGS (11)
  1. ENBREL [Suspect]
     Indication: PRODUCT USED FOR UNKNOWN INDICATION
     Dosage: 50 mg, qwk
     Route: 058
  2. AVAPRO [Concomitant]
     Dosage: 150 mg, UNK
     Route: 048
  3. HYDROCHLOROTH [Concomitant]
     Dosage: 12.5 mg, UNK
     Route: 048
  4. RAPAMUNE [Concomitant]
     Dosage: 1 mg/ml, UNK
     Route: 048
  5. CRESTOR [Concomitant]
     Dosage: 10 mg, UNK
     Route: 048
  6. METHOTREXATE [Concomitant]
     Dosage: 1 mg, UNK
  7. MELOXICAM [Concomitant]
     Dosage: 15 mg, UNK
  8. PREDNISONE [Concomitant]
     Dosage: 10 mg, UNK
     Route: 048
  9. GLUCOSAMINE [Concomitant]
     Dosage: UNK
     Route: 048
  10. CALCIUM [Concomitant]
     Dosage: UNK
  11. CLONIDINE [Concomitant]
     Dosage: 0.1 mg, UNK
     Route: 048

REACTIONS (1)
  - Nasopharyngitis [Unknown]
